FAERS Safety Report 8295595 (Version 4)
Quarter: 2013Q3

REPORT INFORMATION
  Report Type: Report from Study
  Country: HU (occurrence: HU)
  Receive Date: 20111216
  Receipt Date: 20130809
  Transmission Date: 20140515
  Serious: Yes (Death, Hospitalization, Other)
  Sender: FDA-Public Use
  Company Number: HU-PFIZER INC-2011205603

PATIENT
  Age: 79 Year
  Sex: Female

DRUGS (6)
  1. RAMIPRIL [Suspect]
     Dosage: UNK
     Route: 048
  2. POTASSIUM [Suspect]
     Indication: PRODUCT USED FOR UNKNOWN INDICATION
     Dosage: UNK
     Route: 065
  3. AMARYL [Suspect]
     Indication: TYPE 2 DIABETES MELLITUS
     Dosage: 2 MG, UNK
     Route: 065
     Dates: end: 20101115
  4. AMARYL [Suspect]
     Dosage: 1 MG, UNK
     Route: 065
     Dates: start: 20101116
  5. ADEXOR [Concomitant]
     Dosage: UNK
     Dates: start: 20110512
  6. IRBESARTAN [Concomitant]
     Dosage: UNK
     Dates: start: 20110512

REACTIONS (2)
  - Cardiac failure [Fatal]
  - Bradyarrhythmia [Recovered/Resolved]
